FAERS Safety Report 9346672 (Version 1)
Quarter: 2013Q2

REPORT INFORMATION
  Report Type: Spontaneous
  Country: ES (occurrence: ES)
  Receive Date: 20130613
  Receipt Date: 20130613
  Transmission Date: 20140414
  Serious: Yes (Other)
  Sender: FDA-Public Use
  Company Number: ES-SANOFI-AVENTIS-2013SA057585

PATIENT
  Age: 70 Year
  Sex: Female

DRUGS (1)
  1. ELOXATIN [Suspect]
     Indication: COLON NEOPLASM
     Route: 042
     Dates: start: 20121205, end: 20121205

REACTIONS (3)
  - Rhonchi [Recovered/Resolved]
  - Dyspnoea [Recovered/Resolved]
  - Dysphonia [Recovered/Resolved]
